FAERS Safety Report 8596946-3 (Version None)
Quarter: 2012Q3

REPORT INFORMATION
  Report Type: 
  Country: None (occurrence: None)
  Receive Date: 20120815
  Receipt Date: 20120803
  Transmission Date: 20120928
  Serious: Yes (Hospitalization)
  Sender: FDA-Public Use
  Company Number: CA-AMGEN-US228270

PATIENT
  Age: 56 Year
  Sex: Female

DRUGS (16)
  1. FOLIC ACID [Concomitant]
     Dosage: 5 MG, QD
  2. ALFACALCIDOL [Concomitant]
     Dosage: 1 A?G, QD
  3. AZATHIOPRINE SODIUM [Concomitant]
  4. ATORVASTATIN CALCIUM [Concomitant]
     Dosage: 20 MG, UNK
  5. SODIUM CHLORIDE [Concomitant]
     Dosage: 40 MEQ, PRN
  6. IRON DEXTRAN [Concomitant]
     Dosage: 100 MG, Q2WK
     Route: 042
  7. ENALAPRIL MALEATE [Concomitant]
     Dosage: 5 MG, UNK
  8. ERYTHROPOIETIN HUMAN [Concomitant]
     Dosage: 4000 IU, 2 TIMES/WK
     Route: 042
  9. CALCIUM CARBONATE [Concomitant]
     Dosage: 500 MG, TID
  10. FLUTICASONE PROPIONATE [Concomitant]
     Dosage: 125 A?G, Q12H
  11. SEVELAMER HCL [Concomitant]
     Dosage: 1600 MG, TID
  12. IRBESARTAN [Concomitant]
     Dosage: 150 MG, QD
  13. CINACALCET HYDROCHLORIDE [Suspect]
     Indication: HYPERPARATHYROIDISM SECONDARY
     Dosage: UNK UNK, QD
     Route: 048
     Dates: start: 20070328
  14. PREDNISONE TAB [Suspect]
  15. SENNA CONCENTRATE [Concomitant]
     Dosage: UNK UNK, PRN
  16. ALBUTEROL SULATE [Concomitant]
     Dosage: UNK UNK, UNK
     Route: 055

REACTIONS (1)
  - GASTROINTESTINAL HAEMORRHAGE [None]
